FAERS Safety Report 15668109 (Version 3)
Quarter: 2019Q3

REPORT INFORMATION
  Report Type: Report from Study
  Country: DE (occurrence: DE)
  Receive Date: 20181129
  Receipt Date: 20190906
  Transmission Date: 20191004
  Serious: Yes (Death, Hospitalization, Other)
  Sender: FDA-Public Use
  Company Number: DE-BRISTOL-MYERS SQUIBB COMPANY-BMS-2017-027450

PATIENT
  Age: 75 Year
  Sex: Male

DRUGS (18)
  1. JANUMET [Concomitant]
     Active Substance: METFORMIN HYDROCHLORIDE\SITAGLIPTIN PHOSPHATE
     Indication: METABOLIC DISORDER
     Dosage: 1 DF, UNK
     Route: 065
     Dates: start: 20160913
  2. TAMSULOSIN [Concomitant]
     Active Substance: TAMSULOSIN
     Indication: CARDIOVASCULAR DISORDER
     Dosage: 0.4 MG, UNK
     Route: 065
     Dates: start: 20160913
  3. VERAPAMIL [Concomitant]
     Active Substance: VERAPAMIL HYDROCHLORIDE
     Indication: CARDIOVASCULAR DISORDER
     Dosage: 80 MG, UNK
     Route: 065
     Dates: start: 20160913
  4. MORPHINSULFAT ABZ [Concomitant]
     Indication: PRODUCT USED FOR UNKNOWN INDICATION
     Dosage: 10 MG, UNK
     Route: 065
     Dates: start: 20161123
  5. METAMIZOL                          /06276702/ [Concomitant]
     Active Substance: METAMIZOLE
     Indication: PRODUCT USED FOR UNKNOWN INDICATION
     Dosage: 100 ML, UNK
     Route: 065
     Dates: start: 20161024
  6. ACTIQ [Concomitant]
     Active Substance: FENTANYL CITRATE
     Indication: PRODUCT USED FOR UNKNOWN INDICATION
     Dosage: 400 ?G, UNK
     Route: 065
     Dates: start: 20161024
  7. OMEPRAZOL                          /00661201/ [Concomitant]
     Active Substance: OMEPRAZOLE
     Indication: PRODUCT USED FOR UNKNOWN INDICATION
     Dosage: 40 MG, UNK
     Route: 065
     Dates: start: 20160913
  8. TAMSULOSIN [Concomitant]
     Active Substance: TAMSULOSIN
     Indication: CEREBROVASCULAR DISORDER
     Route: 065
  9. VERAPAMIL [Concomitant]
     Active Substance: VERAPAMIL HYDROCHLORIDE
     Indication: CEREBROVASCULAR DISORDER
     Route: 065
  10. NIVOLUMAB [Suspect]
     Active Substance: NIVOLUMAB
     Indication: NON-SMALL CELL LUNG CANCER
     Dosage: 3 MG/KG, Q2WK AT 240 MG
     Route: 042
     Dates: start: 20161026, end: 20181120
  11. ISMN [Concomitant]
     Active Substance: ISOSORBIDE MONONITRATE
     Indication: CARDIOVASCULAR DISORDER
     Dosage: 40 MG, UNK
     Route: 065
     Dates: start: 20160913
  12. ISMN [Concomitant]
     Active Substance: ISOSORBIDE MONONITRATE
     Indication: CEREBROVASCULAR DISORDER
     Route: 065
  13. CEFUROXIM                          /00454602/ [Concomitant]
     Active Substance: CEFUROXIME
     Indication: PRODUCT USED FOR UNKNOWN INDICATION
     Dosage: 500 MG, UNK
     Route: 065
     Dates: start: 20161123
  14. VOCADO HCT [Concomitant]
     Active Substance: AMLODIPINE BESYLATE\HYDROCHLOROTHIAZIDE\OLMESARTAN MEDOXOMIL
     Indication: CEREBROVASCULAR DISORDER
     Route: 065
  15. FENTANYL TRANSDERMAL SYSTEM [Concomitant]
     Active Substance: FENTANYL
     Indication: PRODUCT USED FOR UNKNOWN INDICATION
     Dosage: 25 ?G, UNK
     Route: 065
     Dates: start: 20170302
  16. SEVREDOL [Concomitant]
     Active Substance: MORPHINE
     Indication: PRODUCT USED FOR UNKNOWN INDICATION
     Dosage: 10 MG, UNK
     Route: 065
     Dates: start: 20161024
  17. VOCADO HCT [Concomitant]
     Active Substance: AMLODIPINE BESYLATE\HYDROCHLOROTHIAZIDE\OLMESARTAN MEDOXOMIL
     Indication: CARDIOVASCULAR DISORDER
     Dosage: 1 DF, UNK
     Route: 065
     Dates: start: 20160913
  18. FENTANYL TRANSDERMAL SYSTEM [Concomitant]
     Active Substance: FENTANYL
     Indication: PRODUCT USED FOR UNKNOWN INDICATION
     Dosage: 50 ?G, UNK
     Route: 065
     Dates: start: 20161024

REACTIONS (7)
  - Hepatic enzyme increased [Recovered/Resolved]
  - Cerebral disorder [Fatal]
  - Anaemia [Recovered/Resolved]
  - Malignant neoplasm progression [Not Recovered/Not Resolved]
  - Pruritus [Recovered/Resolved]
  - Vomiting [Recovered/Resolved]
  - General physical health deterioration [Fatal]

NARRATIVE: CASE EVENT DATE: 20170127
